FAERS Safety Report 7467816-9 (Version None)
Quarter: 2011Q2

REPORT INFORMATION
  Report Type: 
  Country: None (occurrence: None)
  Receive Date: 20110509
  Receipt Date: 20110504
  Transmission Date: 20111010
  Serious: Yes (Other)
  Sender: FDA-Public Use
  Company Number: US-ASTRAZENECA-2011SE24400

PATIENT
  Age: 9919 Day
  Sex: Male
  Weight: 89.4 kg

DRUGS (8)
  1. RADIATION THERAPY [Suspect]
     Indication: GLIOBLASTOMA
     Route: 065
     Dates: start: 20110328
  2. TEMOZOLOMIDE [Suspect]
     Indication: GLIOBLASTOMA
     Route: 048
     Dates: start: 20110328, end: 20110421
  3. ATIVAN [Concomitant]
  4. ZOFRAN [Concomitant]
  5. VANDETANIB [Suspect]
     Indication: GLIOBLASTOMA
     Route: 048
     Dates: start: 20110322, end: 20110426
  6. DILAUDID [Concomitant]
  7. VICODIN [Concomitant]
     Dosage: 2 TABLETS DAILY, PRN
     Route: 048
  8. PEPOID [Concomitant]
     Dosage: DAILY

REACTIONS (1)
  - NEUTROPENIA [None]
